FAERS Safety Report 8868164 (Version 1)
Quarter: 2012Q4

REPORT INFORMATION
  Report Type: 
  Country: US (occurrence: US)
  Receive Date: 20121026
  Receipt Date: 20121026
  Transmission Date: 20130627
  Serious: No
  Sender: FDA-Public Use
  Company Number: US-AMGEN-USASP2012041138

PATIENT
  Age: 56 Year
  Sex: Female

DRUGS (12)
  1. ENBREL [Suspect]
     Indication: PRODUCT USED FOR UNKNOWN INDICATION
     Dosage: 50 mg, qwk
     Route: 058
  2. CELEBREX [Concomitant]
     Dosage: 50 UNK, UNK
  3. PREDNISONE [Concomitant]
     Dosage: 1 mg, UNK
  4. TRAMADOL HCL [Concomitant]
     Dosage: 50 mg, UNK
  5. ATENOLOL [Concomitant]
     Dosage: 50 mg, UNK
  6. TUMS                               /00193601/ [Concomitant]
     Dosage: 500 mg, UNK
  7. ACTONEL [Concomitant]
     Dosage: 5 mg, UNK
  8. PRILOSEC                           /00661201/ [Concomitant]
     Dosage: 10 mg, UNK
  9. MULTIVITAMIN                       /00097801/ [Concomitant]
     Dosage: UNK
  10. ALPRAZOLAM [Concomitant]
     Dosage: 2 mg, UNK
  11. CALCIUM [Concomitant]
  12. VITAMIN D /00107901/ [Concomitant]

REACTIONS (5)
  - Asthenia [Unknown]
  - Vomiting [Unknown]
  - Headache [Unknown]
  - Pain [Unknown]
  - Pyrexia [Unknown]
